FAERS Safety Report 21928911 (Version 1)
Quarter: 2023Q1

REPORT INFORMATION
  Report Type: Spontaneous
  Country: SA (occurrence: SA)
  Receive Date: 20230131
  Receipt Date: 20230131
  Transmission Date: 20230418
  Serious: Yes (Other)
  Sender: FDA-Public Use
  Company Number: SA-SUN PHARMACEUTICAL INDUSTRIES LTD-2023RR-374875

PATIENT
  Age: 28 Year
  Sex: Male

DRUGS (3)
  1. VALACYCLOVIR [Suspect]
     Active Substance: VALACYCLOVIR HYDROCHLORIDE
     Indication: Herpes zoster
     Dosage: 1 GRAM THREE TIME A DAY
     Route: 048
  2. TESTOSTERONE [Suspect]
     Active Substance: TESTOSTERONE
     Indication: Product used for unknown indication
     Dosage: UNK
     Route: 065
  3. MUPIROCIN [Suspect]
     Active Substance: MUPIROCIN
     Indication: Herpes zoster
     Dosage: UNK, THREE TIMES A DAY
     Route: 065

REACTIONS (2)
  - Encephalitis [Recovering/Resolving]
  - Drug ineffective [Recovering/Resolving]
